FAERS Safety Report 4550958-5 (Version None)
Quarter: 2004Q4

REPORT INFORMATION
  Report Type: 
  Country: None (occurrence: None)
  Receive Date: 20041217
  Receipt Date: 20040809
  Transmission Date: 20050328
  Serious: No
  Sender: FDA-Public Use
  Company Number: 2004-BP-06617BP

PATIENT
  Age: 82 Year
  Sex: Female

DRUGS (10)
  1. SPIRIVA [Suspect]
     Indication: CHRONIC OBSTRUCTIVE AIRWAYS DISEASE
     Dosage: 18 MCG (18 MCG, 18 MCG ONCE
     Dates: start: 20040701
  2. ALBUTEROL [Concomitant]
  3. NORVASC [Concomitant]
  4. DYAZIDE [Concomitant]
  5. SYNTHROID [Concomitant]
  6. PREVACID [Concomitant]
  7. EVISTA [Concomitant]
  8. ATROVENT [Concomitant]
  9. CLARINEX [Concomitant]
  10. SPIRIVA [Suspect]

REACTIONS (1)
  - COUGH [None]
